FAERS Safety Report 15518151 (Version 2)
Quarter: 2018Q4

REPORT INFORMATION
  Report Type: Report from Study
  Country: MX (occurrence: MX)
  Receive Date: 20181017
  Receipt Date: 20181022
  Transmission Date: 20190205
  Serious: Yes (Disabling, Other)
  Sender: FDA-Public Use
  Company Number: MX-NOVOPROD-627248

PATIENT
  Age: 41 Year
  Sex: Female
  Weight: 73 kg

DRUGS (6)
  1. EUTIROX [Concomitant]
     Active Substance: LEVOTHYROXINE SODIUM
     Indication: PRODUCT USED FOR UNKNOWN INDICATION
     Dosage: 125 MG, QD (1 CAPSULE, VIA ORAL, DAILY INDEFINITIVELY)
     Route: 048
     Dates: start: 2012
  2. SAXENDA [Suspect]
     Active Substance: LIRAGLUTIDE
     Indication: OBESITY
     Dosage: 0.60 MG, QD (0.6 MG/SUBCUTANEOUS/DAILY DURING7 DAYS)
     Route: 058
     Dates: start: 20181008
  3. VITAMIN E                          /00110501/ [Concomitant]
     Active Substance: TOCOPHEROL
     Indication: PRODUCT USED FOR UNKNOWN INDICATION
     Dosage: 1 TAB, QD (1 TABLET DAILY IN THE MORNING/VIA ORAL/ INDEFINITIVE)
     Route: 048
     Dates: start: 201808
  4. DABEX [Concomitant]
     Indication: PRODUCT USED FOR UNKNOWN INDICATION
     Dosage: 750 MG, BID (1 TABLET AFTER THE BREAKFAST, 1 TABLET AFTER THE DINNER VIA ORAL/INDEFINITIVE)
     Route: 048
     Dates: start: 201808
  5. VITAMIN D                          /00107901/ [Concomitant]
     Active Substance: ERGOCALCIFEROL
     Indication: PRODUCT USED FOR UNKNOWN INDICATION
     Dosage: 1 TAB, QD (1 TABLET DAILY IN THE MORNING/VIA ORAL/ INDEFINITIVE)
     Route: 048
     Dates: start: 201808
  6. FERRANINA [Concomitant]
     Indication: PRODUCT USED FOR UNKNOWN INDICATION
     Dosage: 1 TAB, QD
     Route: 048
     Dates: start: 201808

REACTIONS (2)
  - Abdominal distension [Not Recovered/Not Resolved]
  - Diarrhoea [Not Recovered/Not Resolved]

NARRATIVE: CASE EVENT DATE: 20181008
